FAERS Safety Report 21629896 (Version 1)
Quarter: 2022Q4

REPORT INFORMATION
  Report Type: Spontaneous
  Country: CA (occurrence: CA)
  Receive Date: 20221122
  Receipt Date: 20221122
  Transmission Date: 20230112
  Serious: Yes (Other)
  Sender: FDA-Public Use
  Company Number: CA-GILEAD-2022-0605903

PATIENT
  Sex: Female

DRUGS (1)
  1. TRODELVY [Suspect]
     Active Substance: SACITUZUMAB GOVITECAN-HZIY
     Indication: Triple negative breast cancer
     Dosage: UNK
     Route: 065

REACTIONS (6)
  - Lymphoedema [Unknown]
  - Pleural neoplasm [Unknown]
  - Disease progression [Unknown]
  - Neutropenia [Unknown]
  - COVID-19 [Unknown]
  - Diarrhoea [Unknown]
